FAERS Safety Report 23570978 (Version 8)
Quarter: 2025Q4

REPORT INFORMATION
  Report Type: Report from Study
  Country: US (occurrence: US)
  Receive Date: 20240227
  Receipt Date: 20251231
  Transmission Date: 20260117
  Serious: Yes (Other)
  Sender: PFIZER
  Company Number: US-PFIZER INC-PV202400025919

PATIENT
  Age: 74 Year
  Sex: Female
  Weight: 75.873 kg

DRUGS (1)
  1. IBRANCE [Suspect]
     Active Substance: PALBOCICLIB
     Indication: Breast cancer female
     Dosage: 125 MG, CYCLIC (1 TABLET DAILY FOR 21 DAYS, THEN 7 DAYS OFF, AND THEN REPEAT)
     Route: 048

REACTIONS (3)
  - Nephrolithiasis [Unknown]
  - Illness [Unknown]
  - Myalgia [Unknown]
